FAERS Safety Report 11917001 (Version 1)
Quarter: 2016Q1

REPORT INFORMATION
  Report Type: Spontaneous
  Country: KR (occurrence: KR)
  Receive Date: 20160114
  Receipt Date: 20160114
  Transmission Date: 20160526
  Serious: Yes (Other)
  Sender: FDA-Public Use
  Company Number: KR-ABBVIE-16P-090-1536179-00

PATIENT
  Age: 55 Year
  Sex: Female

DRUGS (2)
  1. ORFIL LONG RETARD CAP [Suspect]
     Active Substance: VALPROATE SODIUM
     Indication: PROPHYLAXIS
  2. ORFIL LONG RETARD CAP [Suspect]
     Active Substance: VALPROATE SODIUM
     Indication: SEIZURE
     Route: 048

REACTIONS (10)
  - Erythema nodosum [Recovered/Resolved]
  - Skin mass [Recovered/Resolved]
  - Erythema [Recovered/Resolved]
  - Pain [Recovered/Resolved]
  - C-reactive protein increased [Recovered/Resolved]
  - Alanine aminotransferase increased [Recovered/Resolved]
  - Lipase increased [Recovered/Resolved]
  - Biopsy skin abnormal [Recovered/Resolved]
  - Skin lesion [Recovered/Resolved]
  - Amylase increased [Recovered/Resolved]
